FAERS Safety Report 13826324 (Version 18)
Quarter: 2019Q3

REPORT INFORMATION
  Report Type: Spontaneous
  Country: CA (occurrence: CA)
  Receive Date: 20170802
  Receipt Date: 20190912
  Transmission Date: 20191004
  Serious: Yes (Hospitalization, Other)
  Sender: FDA-Public Use
  Company Number: CA-CELLTRION INC.-2017CA009950

PATIENT

DRUGS (16)
  1. INFLECTRA [Suspect]
     Active Substance: INFLIXIMAB-DYYB
     Dosage: 365 MG, EVERY 8 WEEKS
     Route: 042
     Dates: start: 20180404, end: 20180404
  2. INFLECTRA [Suspect]
     Active Substance: INFLIXIMAB-DYYB
     Dosage: 365 MG, EVERY 8 WEEKS
     Route: 042
     Dates: start: 20190710, end: 20190710
  3. INFLECTRA [Suspect]
     Active Substance: INFLIXIMAB-DYYB
     Dosage: 365 MG, EVERY 8 WEEKS
     Route: 042
     Dates: start: 20190903
  4. INFLECTRA [Suspect]
     Active Substance: INFLIXIMAB-DYYB
     Dosage: 365 MG, EVERY 8 WEEKS
     Route: 042
     Dates: start: 20180926, end: 20180926
  5. INFLECTRA [Suspect]
     Active Substance: INFLIXIMAB-DYYB
     Dosage: 365 MG, EVERY 8 WEEKS
     Route: 042
     Dates: start: 20190515, end: 20190515
  6. INFLECTRA [Suspect]
     Active Substance: INFLIXIMAB-DYYB
     Indication: CROHN^S DISEASE
     Dosage: 350 MG, 0, 2, 6 WEEKS, THEN EVERY 8 WEEKS
     Route: 042
     Dates: start: 20170711, end: 20170711
  7. INFLECTRA [Suspect]
     Active Substance: INFLIXIMAB-DYYB
     Dosage: 365 MG, EVERY 8 WEEKS
     Route: 042
     Dates: start: 20180207, end: 20180207
  8. INFLECTRA [Suspect]
     Active Substance: INFLIXIMAB-DYYB
     Dosage: 365 MG, EVERY 8 WEEKS
     Route: 042
     Dates: start: 20180607, end: 20180607
  9. METHOTREXATE. [Concomitant]
     Active Substance: METHOTREXATE
     Dosage: 25 MG, UNK
     Route: 058
     Dates: start: 201610
  10. HYDROXYCHLOROQUINE [Concomitant]
     Active Substance: HYDROXYCHLOROQUINE
     Dosage: UNK, 1X/DAY
     Route: 065
     Dates: start: 201612
  11. INFLECTRA [Suspect]
     Active Substance: INFLIXIMAB-DYYB
     Dosage: 365 MG, EVERY 8 WEEKS
     Route: 042
     Dates: start: 20190116, end: 20190116
  12. ASACOL [Concomitant]
     Active Substance: MESALAMINE
     Dosage: UNK
     Route: 065
  13. INFLECTRA [Suspect]
     Active Substance: INFLIXIMAB-DYYB
     Dosage: UNK, EVERY 6 WEEKS
     Route: 042
  14. INFLECTRA [Suspect]
     Active Substance: INFLIXIMAB-DYYB
     Dosage: 365 MG, EVERY 8 WEEKS
     Route: 042
     Dates: start: 20180801, end: 20180801
  15. INFLECTRA [Suspect]
     Active Substance: INFLIXIMAB-DYYB
     Dosage: 365 MG, EVERY 0, 2, 6 WEEKS, THEN EVERY 8 WEEKS
     Route: 042
     Dates: start: 20181121, end: 20181121
  16. INFLECTRA [Suspect]
     Active Substance: INFLIXIMAB-DYYB
     Dosage: 365 MG, EVERY 8 WEEKS
     Route: 042
     Dates: start: 20190320, end: 20190320

REACTIONS (23)
  - Acute febrile neutrophilic dermatosis [Not Recovered/Not Resolved]
  - Off label use [Unknown]
  - Product use issue [Unknown]
  - Condition aggravated [Not Recovered/Not Resolved]
  - Dizziness [Recovered/Resolved]
  - Thyroid disorder [Not Recovered/Not Resolved]
  - Poor venous access [Unknown]
  - Incorrect dose administered [Unknown]
  - Fatigue [Not Recovered/Not Resolved]
  - Gait disturbance [Unknown]
  - Skin infection [Not Recovered/Not Resolved]
  - Therapeutic response shortened [Not Recovered/Not Resolved]
  - Asthenia [Unknown]
  - Vomiting [Recovered/Resolved]
  - Limb discomfort [Unknown]
  - Hypoaesthesia [Unknown]
  - Skin lesion [Not Recovered/Not Resolved]
  - X-ray abnormal [Unknown]
  - Abdominal distension [Not Recovered/Not Resolved]
  - Infection [Unknown]
  - Osteoporosis [Not Recovered/Not Resolved]
  - Abdominal pain [Recovered/Resolved]
  - Pain in extremity [Not Recovered/Not Resolved]

NARRATIVE: CASE EVENT DATE: 201708
